FAERS Safety Report 21253068 (Version 2)
Quarter: 2023Q1

REPORT INFORMATION
  Report Type: Report from Study
  Country: FR (occurrence: None)
  Receive Date: 20220825
  Receipt Date: 20230331
  Transmission Date: 20230418
  Serious: Yes (Hospitalization)
  Sender: FDA-Public Use
  Company Number: FR-ROCHE-3164677

PATIENT
  Age: 66 Year
  Sex: Male

DRUGS (5)
  1. BCG-MEDAC [Suspect]
     Active Substance: BACILLUS CALMETTE-GUERIN ANTIGEN, UNSPECIFIED SUBSTRAIN
     Indication: Bladder transitional cell carcinoma
     Dosage: LAST ADMINISTERED ON 29/JUL/2022 WAS 50 ML.
     Route: 043
     Dates: start: 20220516
  2. KARDEGIC [Concomitant]
     Active Substance: ASPIRIN DL-LYSINE
     Route: 048
  3. EZETIMIBE\ROSUVASTATIN [Concomitant]
     Active Substance: EZETIMIBE\ROSUVASTATIN
     Indication: Hypercholesterolaemia
     Dosage: 20/10 MG
  4. ESOMEPRAZOLE [Concomitant]
     Active Substance: ESOMEPRAZOLE
     Route: 048
  5. OFLOXACIN [Concomitant]
     Active Substance: OFLOXACIN
     Dosage: FREQUENCY: 1 TABLET IN THE MORNING AND IN THE EVENING DURING 15 DAYS

REACTIONS (1)
  - Pancreatitis acute [Recovered/Resolved]

NARRATIVE: CASE EVENT DATE: 20220707
